FAERS Safety Report 13287119 (Version 2)
Quarter: 2017Q2

REPORT INFORMATION
  Report Type: Spontaneous
  Country: CA (occurrence: CA)
  Receive Date: 20170302
  Receipt Date: 20170417
  Transmission Date: 20170830
  Serious: Yes (Other)
  Sender: FDA-Public Use
  Company Number: CA-IMPAX LABORATORIES, INC-2017-IPXL-00493

PATIENT
  Age: 23 Year
  Sex: Male

DRUGS (2)
  1. CHLOROQUINE PHOSPHATE. [Suspect]
     Active Substance: CHLOROQUINE PHOSPHATE
     Indication: MALARIA PROPHYLAXIS
     Dosage: 300 MG, UNK
     Route: 048
  2. MEFLOQUINE [Suspect]
     Active Substance: MEFLOQUINE
     Indication: MALARIA PROPHYLAXIS
     Dosage: 228 MG, WEEKLY
     Route: 065
     Dates: start: 1995

REACTIONS (15)
  - Paraesthesia [Recovered/Resolved]
  - Anxiety [Recovered/Resolved]
  - Vertigo [Not Recovered/Not Resolved]
  - Depression [Recovered/Resolved]
  - Hallucination [Unknown]
  - Tachypnoea [Recovered/Resolved]
  - Tachycardia [Recovered/Resolved]
  - Bradypnoea [Recovered/Resolved]
  - Paresis [Recovered/Resolved]
  - Bradycardia [Recovered/Resolved]
  - Fatigue [Not Recovered/Not Resolved]
  - Suicidal ideation [Recovered/Resolved]
  - Condition aggravated [Recovered/Resolved]
  - Tinnitus [Not Recovered/Not Resolved]
  - Paranoia [Unknown]
